FAERS Safety Report 6760779-0 (Version None)
Quarter: 2010Q2

REPORT INFORMATION
  Report Type: 
  Country: None (occurrence: None)
  Receive Date: 20100607
  Receipt Date: 20100607
  Transmission Date: 20101027
  Serious: Yes (Other)
  Sender: FDA-Public Use
  Company Number: None

PATIENT
  Sex: Female
  Weight: 63.5036 kg

DRUGS (7)
  1. FOSAMAX [Suspect]
     Indication: OSTEOPOROSIS
     Dosage: APPROX. 4 YEARS
  2. ALENDRONATE SODIUM [Suspect]
     Indication: OSTEOPOROSIS
     Dosage: APPROX. 10 YEARS
  3. XIFAXAN [Concomitant]
  4. ACTIGALL [Concomitant]
  5. CA+ [Concomitant]
  6. FISH OIL [Concomitant]
  7. FERROUS SULFATE TAB [Concomitant]

REACTIONS (2)
  - BONE PAIN [None]
  - PAIN IN EXTREMITY [None]
